FAERS Safety Report 19144591 (Version 1)
Quarter: 2021Q2

REPORT INFORMATION
  Report Type: Spontaneous
  Country: US (occurrence: US)
  Receive Date: 20210416
  Receipt Date: 20210416
  Transmission Date: 20210717
  Serious: No
  Sender: FDA-Public Use
  Company Number: None

PATIENT
  Age: 72 Year
  Sex: Male

DRUGS (1)
  1. VANCOMYCIN [Suspect]
     Active Substance: VANCOMYCIN
     Indication: STAPHYLOCOCCAL SEPSIS
     Dates: start: 20210310, end: 20210409

REACTIONS (3)
  - Urticaria [None]
  - Erythema multiforme [None]
  - Dermatitis exfoliative [None]

NARRATIVE: CASE EVENT DATE: 20210409
